FAERS Safety Report 7624433-5 (Version None)
Quarter: 2011Q3

REPORT INFORMATION
  Report Type: 
  Country: None (occurrence: None)
  Receive Date: 20110712
  Receipt Date: 20110630
  Transmission Date: 20111222
  Serious: Yes (Hospitalization)
  Sender: FDA-Public Use
  Company Number: 2010SP053353

PATIENT
  Age: 32 Year
  Sex: Female
  Weight: 81.6475 kg

DRUGS (3)
  1. PREDNISONE [Concomitant]
  2. NUVARING [Suspect]
     Indication: CONTRACEPTION
     Dates: start: 20041201, end: 20050401
  3. NUVARING [Suspect]
     Indication: CONTRACEPTION
     Dates: start: 20070101, end: 20070201

REACTIONS (17)
  - PULMONARY EMBOLISM [None]
  - HYPERLIPIDAEMIA [None]
  - BACK PAIN [None]
  - HELICOBACTER GASTRITIS [None]
  - HAEMATOMA [None]
  - DRUG HYPERSENSITIVITY [None]
  - NEPHROLITHIASIS [None]
  - OROPHARYNGEAL PAIN [None]
  - URTICARIA [None]
  - NECK PAIN [None]
  - BILIARY DYSKINESIA [None]
  - ATELECTASIS [None]
  - NIGHT SWEATS [None]
  - ARTHROPOD BITE [None]
  - GASTROOESOPHAGEAL REFLUX DISEASE [None]
  - GALLBLADDER DISORDER [None]
  - THYROID NEOPLASM [None]
